FAERS Safety Report 21134865 (Version 2)
Quarter: 2022Q3

REPORT INFORMATION
  Report Type: Spontaneous
  Country: US (occurrence: US)
  Receive Date: 20220727
  Receipt Date: 20220919
  Transmission Date: 20221027
  Serious: Yes (Other)
  Sender: FDA-Public Use
  Company Number: US-JNJFOC-20220741567

PATIENT
  Age: 66 Year
  Sex: Female

DRUGS (25)
  1. ELMIRON [Suspect]
     Active Substance: PENTOSAN POLYSULFATE SODIUM
     Indication: Cystitis interstitial
     Dosage: 100 MG THREE TIMES DAILY
     Route: 048
     Dates: start: 19990930, end: 20000908
  2. ELMIRON [Suspect]
     Active Substance: PENTOSAN POLYSULFATE SODIUM
     Dosage: 100 MG THREE TIMES DAILY
     Route: 048
     Dates: start: 20001222, end: 20010622
  3. ELMIRON [Suspect]
     Active Substance: PENTOSAN POLYSULFATE SODIUM
     Dosage: 100 MG THREE TIMES DAILY
     Route: 048
     Dates: start: 20011111, end: 20020211
  4. ELMIRON [Suspect]
     Active Substance: PENTOSAN POLYSULFATE SODIUM
     Dosage: 100 MG THREE TIMES DAILY
     Route: 048
     Dates: start: 20050222, end: 20050622
  5. ELMIRON [Suspect]
     Active Substance: PENTOSAN POLYSULFATE SODIUM
     Dosage: 100 MG THREE TIMES DAILY
     Route: 048
     Dates: start: 20050902, end: 20060515
  6. ELMIRON [Suspect]
     Active Substance: PENTOSAN POLYSULFATE SODIUM
     Dosage: 100 MG THREE TIMES DAILY
     Route: 048
     Dates: start: 20070110, end: 20080303
  7. ELMIRON [Suspect]
     Active Substance: PENTOSAN POLYSULFATE SODIUM
     Dosage: 100 MG THREE TIMES DAILY
     Route: 048
     Dates: start: 20100208, end: 20120210
  8. ELMIRON [Suspect]
     Active Substance: PENTOSAN POLYSULFATE SODIUM
     Dosage: 100 MG THREE TIMES DAILY
     Route: 048
     Dates: start: 20140707, end: 20150406
  9. ELMIRON [Suspect]
     Active Substance: PENTOSAN POLYSULFATE SODIUM
     Dosage: 100 MG THREE TIMES DAILY
     Route: 048
     Dates: start: 20150615, end: 20150915
  10. ELMIRON [Suspect]
     Active Substance: PENTOSAN POLYSULFATE SODIUM
     Dosage: 100 MG THREE TIMES DAILY
     Route: 048
     Dates: start: 20160208, end: 20160831
  11. ELMIRON [Suspect]
     Active Substance: PENTOSAN POLYSULFATE SODIUM
     Dosage: 100 MG THREE TIMES DAILY
     Route: 048
     Dates: start: 20170213, end: 20180403
  12. ELMIRON [Suspect]
     Active Substance: PENTOSAN POLYSULFATE SODIUM
     Dosage: 100 MG THREE TIMES DAILY
     Route: 048
     Dates: start: 20180515, end: 20190110
  13. ELMIRON [Suspect]
     Active Substance: PENTOSAN POLYSULFATE SODIUM
     Dosage: 100 MG THREE TIMES DAILY
     Route: 048
     Dates: start: 20190130, end: 20200623
  14. LIPITOR [Concomitant]
     Active Substance: ATORVASTATIN CALCIUM
     Indication: Blood triglycerides increased
     Dates: start: 2000
  15. EFFEXOR [Concomitant]
     Active Substance: VENLAFAXINE HYDROCHLORIDE
     Indication: Fibromyalgia
     Dates: start: 2012, end: 2018
  16. DITROPAN XL [Concomitant]
     Active Substance: OXYBUTYNIN CHLORIDE
     Indication: Hypertonic bladder
     Dates: start: 1999, end: 2020
  17. MYRBETRIQ [Concomitant]
     Active Substance: MIRABEGRON
     Indication: Hypertonic bladder
     Dates: start: 2018
  18. NASCOBAL [Concomitant]
     Active Substance: CYANOCOBALAMIN
     Indication: Anaemia
     Route: 045
     Dates: start: 2005
  19. GLIMEPIRIDE [Concomitant]
     Active Substance: GLIMEPIRIDE
     Indication: Diabetes mellitus
     Dates: start: 2012, end: 2020
  20. ULORIC [Concomitant]
     Active Substance: FEBUXOSTAT
     Indication: Blood uric acid decreased
     Dates: start: 2012
  21. POTASSIUM CITRATE [Concomitant]
     Active Substance: POTASSIUM CITRATE
     Indication: Renal disorder
     Dates: start: 2014
  22. CARVEDILOL [Concomitant]
     Active Substance: CARVEDILOL
     Indication: Cardiac disorder
     Dates: start: 2013
  23. TEMAZEPAM [Concomitant]
     Active Substance: TEMAZEPAM
     Indication: Sleep disorder
     Dates: start: 2012
  24. OZEMPIC [Concomitant]
     Active Substance: SEMAGLUTIDE
     Indication: Diabetes mellitus
     Dates: start: 2020
  25. SYNTHROID [Concomitant]
     Active Substance: LEVOTHYROXINE SODIUM
     Indication: Thyroid disorder
     Dates: start: 2000

REACTIONS (5)
  - Dry age-related macular degeneration [Not Recovered/Not Resolved]
  - Blindness unilateral [Not Recovered/Not Resolved]
  - Maculopathy [Not Recovered/Not Resolved]
  - Detachment of retinal pigment epithelium [Not Recovered/Not Resolved]
  - Depression [Not Recovered/Not Resolved]

NARRATIVE: CASE EVENT DATE: 20181207
